FAERS Safety Report 10288318 (Version 3)
Quarter: 2014Q3

REPORT INFORMATION
  Report Type: Spontaneous
  Country: GB (occurrence: GB)
  Receive Date: 20140709
  Receipt Date: 20140828
  Transmission Date: 20150326
  Serious: Yes (Other)
  Sender: FDA-Public Use
  Company Number: GB-UCBSA-2014003085

PATIENT
  Sex: Male

DRUGS (2)
  1. NEUPRO [Suspect]
     Active Substance: ROTIGOTINE
     Dosage: 3 MG, ONCE DAILY (QD)
     Route: 062
     Dates: start: 201305
  2. NEUPRO [Suspect]
     Active Substance: ROTIGOTINE
     Dosage: 2 MG, UNK
     Route: 062
     Dates: start: 201301

REACTIONS (3)
  - Fatigue [Unknown]
  - Condition aggravated [Unknown]
  - Drug ineffective [Unknown]
